FAERS Safety Report 10371726 (Version 1)
Quarter: 2014Q1

REPORT INFORMATION
  Report Type: Spontaneous
  Country: US (occurrence: None)
  Receive Date: 20140306
  Receipt Date: 20140306
  Transmission Date: 20141002
  Serious: Yes (Hospitalization, Other)
  Sender: FDA-Public Use
  Company Number: 163-21880-12103863

PATIENT
  Age: 77 Year
  Sex: Female
  Weight: 40.01 kg

DRUGS (1)
  1. REVLIMID [Suspect]
     Indication: PLASMA CELL MYELOMA
     Dosage: 15 MG, EVERY OTHER DAY X  21 OFF 7 DAYS, PO
     Route: 048
     Dates: start: 20110623

REACTIONS (2)
  - Skin discolouration [None]
  - Dyspnoea [None]
